FAERS Safety Report 11062452 (Version 1)
Quarter: 2015Q2

REPORT INFORMATION
  Report Type: Report from Study
  Country: BR (occurrence: BR)
  Receive Date: 20150424
  Receipt Date: 20150424
  Transmission Date: 20150821
  Serious: Yes (Other)
  Sender: FDA-Public Use
  Company Number: BR-SA-2015SA049132

PATIENT
  Age: 43 Year
  Sex: Female
  Weight: 95 kg

DRUGS (8)
  1. LANTUS [Suspect]
     Active Substance: INSULIN GLARGINE
     Indication: DIABETES MELLITUS
     Route: 065
     Dates: start: 2012
  2. NOVORAPID [Concomitant]
     Active Substance: INSULIN ASPART
     Indication: DIABETES MELLITUS
  3. CLIKSTAR [Concomitant]
     Active Substance: CLIKSTAR
     Dates: start: 2012
  4. CERAZETTE [Concomitant]
     Active Substance: DESOGESTREL
     Indication: CONTRACEPTION
  5. DEPAKENE [Concomitant]
     Active Substance: VALPROIC ACID
     Indication: ANEURYSM
     Dosage: TAKEN FROM: AFTER 2011
  6. JANUMET [Concomitant]
     Active Substance: METFORMIN HYDROCHLORIDE\SITAGLIPTIN PHOSPHATE
     Indication: DIABETES MELLITUS
     Dosage: TAKEN FROM: SINCE LONG?JANUMET (METFORMIN?HYDROCHLORIDE/SITAGLIPTIN?PHOSPHATE ) 50/1000 MG
  7. PANTOPRAZOLE [Concomitant]
     Active Substance: PANTOPRAZOLE SODIUM
     Indication: PROPHYLAXIS
     Dates: start: 2012
  8. NEUTROFER [Concomitant]
     Active Substance: FERROUS BISGLYCINATE
     Indication: BLOOD IRON DECREASED

REACTIONS (5)
  - Injection site warmth [Not Recovered/Not Resolved]
  - Injection site abscess [Not Recovered/Not Resolved]
  - Injection site pain [Not Recovered/Not Resolved]
  - Injection site induration [Not Recovered/Not Resolved]
  - Injection site swelling [Not Recovered/Not Resolved]

NARRATIVE: CASE EVENT DATE: 201504
